APPROVED DRUG PRODUCT: ISOSULFAN BLUE
Active Ingredient: ISOSULFAN BLUE
Strength: 50MG/5ML (10MG/ML)
Dosage Form/Route: SOLUTION;SUBCUTANEOUS
Application: A210294 | Product #001 | TE Code: AP
Applicant: AMERICAN REGENT INC
Approved: May 17, 2023 | RLD: No | RS: No | Type: RX